FAERS Safety Report 4751681-4 (Version None)
Quarter: 2005Q3

REPORT INFORMATION
  Report Type: 
  Country: None (occurrence: None)
  Receive Date: 20050822
  Receipt Date: 20050805
  Transmission Date: 20060218
  Serious: Yes (Hospitalization)
  Sender: FDA-Public Use
  Company Number: DSA_26885_2005

PATIENT
  Age: 70 Year
  Sex: Male

DRUGS (11)
  1. RENIVACE [Suspect]
     Dosage: DF UNK PO
     Route: 048
     Dates: start: 20050413, end: 20050528
  2. GASTER D [Suspect]
     Dosage: 10 MG QD PO
     Route: 048
     Dates: start: 20050328, end: 20050525
  3. PANALDINE [Suspect]
     Dosage: DF UNK PO
     Route: 048
     Dates: start: 20050409, end: 20050525
  4. ADALAT [Concomitant]
  5. ASPIRIN [Concomitant]
  6. CARDENALIN [Concomitant]
  7. LAXOBERON [Concomitant]
  8. NITOROL-R [Concomitant]
  9. SELOKEN [Concomitant]
  10. CALCIUM CARBONATE [Concomitant]
  11. PURSENNID [Concomitant]

REACTIONS (6)
  - BLOOD ALKALINE PHOSPHATASE INCREASED [None]
  - BLOOD CREATININE INCREASED [None]
  - BLOOD UREA INCREASED [None]
  - C-REACTIVE PROTEIN INCREASED [None]
  - GAMMA-GLUTAMYLTRANSFERASE INCREASED [None]
  - PANCYTOPENIA [None]
